FAERS Safety Report 11627014 (Version 1)
Quarter: 2015Q4

REPORT INFORMATION
  Report Type: Spontaneous
  Country: US (occurrence: US)
  Receive Date: 20151013
  Receipt Date: 20151013
  Transmission Date: 20160304
  Serious: No
  Sender: FDA-Public Use
  Company Number: GXBR2015US002211

PATIENT
  Sex: Male
  Weight: 102.95 kg

DRUGS (1)
  1. SOLARAZE [Suspect]
     Active Substance: DICLOFENAC SODIUM
     Indication: SKIN DISORDER
     Dosage: DF, ONCE OR TWICE A WEEK
     Route: 061
     Dates: end: 20150927

REACTIONS (1)
  - Expired product administered [Not Recovered/Not Resolved]
